FAERS Safety Report 8532740-7 (Version None)
Quarter: 2012Q3

REPORT INFORMATION
  Report Type: 
  Country: None (occurrence: None)
  Receive Date: 20120724
  Receipt Date: 20120718
  Transmission Date: 20120928
  Serious: Yes (Hospitalization, Other)
  Sender: FDA-Public Use
  Company Number: PHHY2012FR055959

PATIENT
  Sex: Male
  Weight: 68.8 kg

DRUGS (8)
  1. MICROPAKINE [Concomitant]
     Dosage: 1500 MG, PER DAY
  2. TRAMADOL HCL [Concomitant]
     Dosage: 100 MG, BID
  3. FRAGMIN [Concomitant]
     Dosage: 5000 IU, PER DAY
  4. TEGRETOL [Suspect]
     Indication: POST-TRAUMATIC EPILEPSY
     Dosage: 400 MG, BID
     Route: 048
     Dates: start: 20070101, end: 20120627
  5. NEXIUM [Concomitant]
     Dosage: 40 MG, PER DAY
  6. AMLODIPINE BESYLATE [Concomitant]
     Dosage: 5 MG, PER DAY
  7. TEMAZEPAM [Concomitant]
     Dosage: 25 MG, PER DAY
  8. ACETAMINOPHEN [Concomitant]
     Dosage: 1 G, TID

REACTIONS (4)
  - NERVOUS SYSTEM DISORDER [None]
  - EPILEPSY [None]
  - CEREBRAL HAEMATOMA [None]
  - HYPONATRAEMIA [None]
